FAERS Safety Report 12308341 (Version 5)
Quarter: 2016Q3

REPORT INFORMATION
  Report Type: Report from Study
  Country: US (occurrence: US)
  Receive Date: 20160426
  Receipt Date: 20160825
  Transmission Date: 20161109
  Serious: Yes (Hospitalization)
  Sender: FDA-Public Use
  Company Number: US-BIOGEN-2016BI00226283

PATIENT
  Age: 36 Year
  Sex: Female

DRUGS (1)
  1. TYSABRI [Suspect]
     Active Substance: NATALIZUMAB
     Indication: MULTIPLE SCLEROSIS
     Route: 065
     Dates: start: 20131227, end: 20151115

REACTIONS (7)
  - Hysterectomy [Recovered/Resolved]
  - Gallbladder operation [Recovered/Resolved]
  - Urinary tract infection [Recovered/Resolved]
  - Urinary sediment present [Unknown]
  - Appendicectomy [Recovered/Resolved]
  - Blood count abnormal [Unknown]
  - Urine abnormality [Unknown]

NARRATIVE: CASE EVENT DATE: 20151019
